FAERS Safety Report 13280504 (Version 1)
Quarter: 2017Q1

REPORT INFORMATION
  Report Type: Spontaneous
  Country: US (occurrence: US)
  Receive Date: 20170301
  Receipt Date: 20170301
  Transmission Date: 20170428
  Serious: No
  Sender: FDA-Public Use
  Company Number: ALCN2017US001680

PATIENT
  Age: 54 Year
  Sex: Female

DRUGS (1)
  1. TOBRADEX ST [Suspect]
     Active Substance: DEXAMETHASONE\TOBRAMYCIN
     Indication: EYE INFECTION
     Dosage: 1 GTT, QID
     Route: 047
     Dates: start: 20170221, end: 20170226

REACTIONS (1)
  - Drug ineffective [Unknown]

NARRATIVE: CASE EVENT DATE: 201702
